FAERS Safety Report 9011781 (Version 1)
Quarter: 2013Q1

REPORT INFORMATION
  Report Type: Spontaneous
  Country: US (occurrence: US)
  Receive Date: 20130113
  Receipt Date: 20130113
  Transmission Date: 20140127
  Serious: Yes (Other)
  Sender: FDA-Public Use
  Company Number: US-009507513-1205USA03065

PATIENT
  Age: 6 Year
  Sex: Female
  Weight: 27.22 kg

DRUGS (1)
  1. SINGULAIR [Suspect]
     Indication: MULTIPLE ALLERGIES
     Dosage: 5 MG, HS
     Route: 048
     Dates: start: 20110101

REACTIONS (4)
  - Suicidal ideation [Unknown]
  - Abnormal dreams [Unknown]
  - Aggression [Unknown]
  - Mood swings [Unknown]
